FAERS Safety Report 7598475-2 (Version None)
Quarter: 2011Q3

REPORT INFORMATION
  Report Type: 
  Country: None (occurrence: None)
  Receive Date: 20110708
  Receipt Date: 20110630
  Transmission Date: 20111222
  Serious: Yes (Other)
  Sender: FDA-Public Use
  Company Number: US-ELI_LILLY_AND_COMPANY-US201107000475

PATIENT
  Sex: Male

DRUGS (5)
  1. EFFIENT [Suspect]
     Indication: STENT PLACEMENT
     Dosage: 10 MG, QD
     Dates: start: 20110610
  2. ASPIRIN [Concomitant]
     Dosage: 81 MG, UNK
  3. COUMADIN [Concomitant]
  4. LISINOPRIL [Concomitant]
  5. ZOCOR [Concomitant]

REACTIONS (2)
  - OFF LABEL USE [None]
  - CEREBROVASCULAR ACCIDENT [None]
